FAERS Safety Report 6234685-4 (Version None)
Quarter: 2009Q2

REPORT INFORMATION
  Report Type: 
  Country: None (occurrence: None)
  Receive Date: 20090615
  Receipt Date: 20090312
  Transmission Date: 20091009
  Serious: No
  Sender: FDA-Public Use
  Company Number: DSA_33378_2009

PATIENT
  Sex: Female
  Weight: 56.6996 kg

DRUGS (5)
  1. XENAZINE [Suspect]
     Indication: HUNTINGTON'S CHOREA
     Dosage: (2 DF QD), (DF)
     Dates: start: 20090101, end: 20090206
  2. XENAZINE [Suspect]
     Indication: HUNTINGTON'S CHOREA
     Dosage: (2 DF QD), (DF)
     Dates: start: 20090101
  3. PREMARIN [Concomitant]
  4. WELLBUTRIN [Concomitant]
  5. AMLODIPINE [Concomitant]

REACTIONS (2)
  - NAUSEA [None]
  - VOMITING [None]
